FAERS Safety Report 7487520-0 (Version None)
Quarter: 2011Q2

REPORT INFORMATION
  Report Type: 
  Country: None (occurrence: None)
  Receive Date: 20110518
  Receipt Date: 20110428
  Transmission Date: 20111010
  Serious: No
  Sender: FDA-Public Use
  Company Number: US-B.I. PHARMACEUTICALS,INC./RIDGEFIELD-2011-BP-03413BP

PATIENT
  Sex: Female

DRUGS (6)
  1. LISINOPRIL [Concomitant]
  2. IBUPROFEN [Concomitant]
  3. SIMVASTATIN [Concomitant]
  4. LEVOTHYROXINE SODIUM [Concomitant]
  5. SPIRIVA [Suspect]
     Indication: HYPOPNOEA
     Dosage: 18 MCG
     Dates: start: 20100901
  6. ALENDRONATE SODIUM [Concomitant]

REACTIONS (1)
  - DRUG INEFFECTIVE [None]
